FAERS Safety Report 8887702 (Version 1)
Quarter: 2012Q4

REPORT INFORMATION
  Report Type: 
  Country: US (occurrence: US)
  Receive Date: 20121106
  Receipt Date: 20121106
  Transmission Date: 20130627
  Serious: Yes (Hospitalization, Other)
  Sender: FDA-Public Use
  Company Number: US-VERTEX PHARMACEUTICAL INC.-2012-024029

PATIENT
  Sex: Male
  Weight: 106.58 kg

DRUGS (4)
  1. INCIVEK [Suspect]
     Indication: HEPATITIS C
     Dosage: 750 mg, tid
     Route: 048
     Dates: start: 20120304, end: 20120526
  2. RIBAVIRIN [Suspect]
     Indication: HEPATITIS C
     Dosage: 1000 mg, qd
     Route: 048
     Dates: start: 20120304, end: 20121019
  3. PEGASYS [Suspect]
     Indication: HEPATITIS C
     Dosage: 180 ?g, weekly
     Route: 058
     Dates: start: 20120304, end: 20121019
  4. NEUPOGEN [Suspect]
     Indication: WHITE BLOOD CELL COUNT DECREASED

REACTIONS (6)
  - White blood cell count decreased [Recovered/Resolved]
  - Infection [Recovered/Resolved]
  - Nephrolithiasis [None]
  - Flank pain [Recovered/Resolved]
  - Laceration [Recovered/Resolved]
  - Rash [Recovered/Resolved]
